FAERS Safety Report 4801182-X (Version None)
Quarter: 2005Q4

REPORT INFORMATION
  Report Type: 
  Country: None (occurrence: None)
  Receive Date: 20051011
  Receipt Date: 20050926
  Transmission Date: 20060501
  Serious: Yes (Hospitalization, Other)
  Sender: FDA-Public Use
  Company Number: HQWYE737929SEP05

PATIENT
  Age: 5 Year
  Sex: Male

DRUGS (3)
  1. CHILDREN'S ADVIL [Suspect]
     Indication: EAR INFECTION
     Dosage: 1 DOSE FOR 18 KG 3 TIMES DAILY, ORAL
     Route: 048
     Dates: start: 20050802, end: 20050810
  2. AUGMENTIN '125' [Concomitant]
  3. TIXOCORTOL PIVALATE [Concomitant]

REACTIONS (5)
  - HAEMOGLOBIN DECREASED [None]
  - MASTOIDITIS [None]
  - OTITIS MEDIA [None]
  - PLATELET COUNT INCREASED [None]
  - PSEUDOMONAS INFECTION [None]
